FAERS Safety Report 9048569 (Version 1)
Quarter: 2013Q1

REPORT INFORMATION
  Report Type: Spontaneous
  Country: US (occurrence: None)
  Receive Date: 20130130
  Receipt Date: 20130130
  Transmission Date: 20140127
  Serious: Yes (Hospitalization)
  Sender: FDA-Public Use
  Company Number: None

PATIENT
  Age: 81 Year
  Sex: Male
  Weight: 93.4 kg

DRUGS (19)
  1. ASA [Suspect]
     Indication: CORONARY ARTERY DISEASE
     Dosage: CHRONIC
     Route: 048
  2. PROTONIX [Concomitant]
  3. DUONEB [Concomitant]
  4. NORVASC [Concomitant]
  5. BROVANA [Concomitant]
  6. LIPITOR [Concomitant]
  7. BUDESONIDE [Concomitant]
  8. BUMEX [Concomitant]
  9. MUCINEX DM [Concomitant]
  10. CARDIZEM [Concomitant]
  11. FES04 [Concomitant]
  12. GLIPIZIDE [Concomitant]
  13. IMDUR [Concomitant]
  14. MV [Concomitant]
  15. KCL [Concomitant]
  16. RANEXA [Concomitant]
  17. DALIRESP [Concomitant]
  18. SUCRALFATE [Concomitant]
  19. SPIRIVA [Concomitant]

REACTIONS (2)
  - Gastric haemorrhage [None]
  - Condition aggravated [None]
